FAERS Safety Report 14596619 (Version 1)
Quarter: 2018Q1

REPORT INFORMATION
  Report Type: Spontaneous
  Country: IT (occurrence: IT)
  Receive Date: 20180304
  Receipt Date: 20180304
  Transmission Date: 20180509
  Serious: Yes (Other)
  Sender: FDA-Public Use
  Company Number: IT-AUROBINDO-AUR-APL-2018-010690

PATIENT

DRUGS (1)
  1. LEVETIRACETAM FILM-COATED TABLET [Suspect]
     Active Substance: LEVETIRACETAM
     Indication: EPILEPSY
     Route: 065

REACTIONS (3)
  - Wrong technique in product usage process [Unknown]
  - Seizure [Unknown]
  - Drug dose omission [Unknown]
